FAERS Safety Report 25769094 (Version 1)
Quarter: 2025Q3

REPORT INFORMATION
  Report Type: Spontaneous
  Country: CA (occurrence: CA)
  Receive Date: 20250905
  Receipt Date: 20250905
  Transmission Date: 20251021
  Serious: Yes (Other)
  Sender: AMGEN
  Company Number: CA-AMGEN-CANSL2025172040

PATIENT
  Age: 55 Year
  Sex: Female

DRUGS (8)
  1. REPATHA [Suspect]
     Active Substance: EVOLOCUMAB
     Indication: Product used for unknown indication
     Dosage: 140 MILLIGRAM PER MILLILITRE, Q2WK
     Route: 065
  2. CRESTOR [Concomitant]
     Active Substance: ROSUVASTATIN CALCIUM
     Dosage: 20 MILLIGRAM, QD
     Dates: start: 20181126
  3. CANDESARTAN CILEXETIL\HYDROCHLOROTHIAZIDE [Concomitant]
     Active Substance: CANDESARTAN CILEXETIL\HYDROCHLOROTHIAZIDE
     Dates: start: 20240726
  4. EZETIMIBE [Concomitant]
     Active Substance: EZETIMIBE
  5. ASPIRIN [Concomitant]
     Active Substance: ASPIRIN
  6. OMEGA 3 [Concomitant]
     Active Substance: CAPSAICIN
  7. INDAPAMIDE\PERINDOPRIL [Concomitant]
     Active Substance: INDAPAMIDE\PERINDOPRIL
  8. BISOPROLOL FUMARATE [Concomitant]
     Active Substance: BISOPROLOL FUMARATE

REACTIONS (14)
  - Myocardial ischaemia [Unknown]
  - Angina pectoris [Unknown]
  - Dizziness [Unknown]
  - Chest pain [Unknown]
  - Electrocardiogram abnormal [Unknown]
  - Dyspnoea exertional [Unknown]
  - Alanine aminotransferase increased [Unknown]
  - Blood albumin abnormal [Unknown]
  - Orthostatic hypotension [Unknown]
  - COVID-19 [Unknown]
  - Blood pressure increased [Unknown]
  - Hyperhidrosis [Unknown]
  - Pyrexia [Unknown]
  - Oropharyngeal pain [Unknown]

NARRATIVE: CASE EVENT DATE: 20221201
